FAERS Safety Report 15298159 (Version 2)
Quarter: 2020Q2

REPORT INFORMATION
  Report Type: Spontaneous
  Country: US (occurrence: US)
  Receive Date: 20180820
  Receipt Date: 20200519
  Transmission Date: 20200713
  Serious: Yes (Death, Life-Threatening, Hospitalization, Other)
  Sender: FDA-Public Use
  Company Number: US-009507513-1808USA008037

PATIENT
  Sex: Male
  Weight: 104.31 kg

DRUGS (2)
  1. VICTOZA [Suspect]
     Active Substance: LIRAGLUTIDE
     Indication: TYPE 2 DIABETES MELLITUS
     Dosage: 1.8 MILLIGRAM, QD
     Route: 065
     Dates: start: 20121022, end: 201403
  2. JANUVIA [Suspect]
     Active Substance: SITAGLIPTIN PHOSPHATE
     Indication: TYPE 2 DIABETES MELLITUS
     Dosage: 100 MILLIGRAM, QD
     Route: 048
     Dates: start: 201202, end: 201203

REACTIONS (46)
  - Pancreatitis [Recovered/Resolved]
  - Retinopathy [Not Recovered/Not Resolved]
  - Pancreatic carcinoma [Fatal]
  - Bacteraemia [Fatal]
  - Pancreatitis [Unknown]
  - Gallbladder disorder [Recovered/Resolved]
  - Benign prostatic hyperplasia [Unknown]
  - Blood pressure decreased [Unknown]
  - Sleep disorder [Unknown]
  - Malignant biliary obstruction [Unknown]
  - Renal disorder [Not Recovered/Not Resolved]
  - Gastrectomy [Unknown]
  - Blood chloride abnormal [Unknown]
  - Ischaemic stroke [Fatal]
  - Cancer pain [Unknown]
  - Hyperlipidaemia [Not Recovered/Not Resolved]
  - Periodontal disease [Not Recovered/Not Resolved]
  - Jaundice [Unknown]
  - Fatigue [Unknown]
  - Decreased appetite [Recovering/Resolving]
  - Acute kidney injury [Unknown]
  - Septic shock [Unknown]
  - Macular oedema [Not Recovered/Not Resolved]
  - Depression [Unknown]
  - Vision blurred [Unknown]
  - Haematocrit decreased [Unknown]
  - Haemoglobin decreased [Unknown]
  - Blood potassium abnormal [Unknown]
  - Constipation [Unknown]
  - Neuropathy peripheral [Not Recovered/Not Resolved]
  - Hypertension [Recovered/Resolved]
  - Gastrooesophageal reflux disease [Unknown]
  - Blood sodium abnormal [Unknown]
  - Activated partial thromboplastin time abnormal [Unknown]
  - Staphylococcus test positive [Unknown]
  - Acute respiratory failure [Fatal]
  - Anxiety [Unknown]
  - Duodenal switch [Unknown]
  - Blood albumin decreased [Unknown]
  - Mean cell haemoglobin concentration abnormal [Unknown]
  - Febrile neutropenia [Fatal]
  - Atrial fibrillation [Fatal]
  - Encephalopathy [Unknown]
  - Fall [Unknown]
  - Back pain [Unknown]
  - Nausea [Unknown]

NARRATIVE: CASE EVENT DATE: 2012
